FAERS Safety Report 5178826-9 (Version None)
Quarter: 2006Q4

REPORT INFORMATION
  Report Type: 
  Country: None (occurrence: None)
  Receive Date: 20061208
  Receipt Date: 20061127
  Transmission Date: 20070319
  Serious: Yes (Other)
  Sender: FDA-Public Use
  Company Number: A-JP2006-13707

PATIENT
  Age: 19 Year
  Sex: Male

DRUGS (7)
  1. TRACLEER [Suspect]
     Indication: PULMONARY HYPERTENSION
     Dosage: 62.5 MG, BID, ORAL
     Route: 048
     Dates: start: 20061102, end: 20061110
  2. BERAPROST SODIUM (BERAPROST SODIUM) [Concomitant]
  3. CAPTOPRIL [Concomitant]
  4. FUROSEMIDE [Concomitant]
  5. SPIRONOLACTONE [Concomitant]
  6. ASPIRIN [Concomitant]
  7. DIGOXIN [Concomitant]

REACTIONS (3)
  - SWELLING FACE [None]
  - URINE OUTPUT DECREASED [None]
  - WEIGHT INCREASED [None]
